FAERS Safety Report 4926843-3 (Version None)
Quarter: 2006Q1

REPORT INFORMATION
  Report Type: 
  Country: None (occurrence: None)
  Receive Date: 20060228
  Receipt Date: 20050701
  Transmission Date: 20060701
  Serious: No
  Sender: FDA-Public Use
  Company Number: US-GLAXOSMITHKLINE-A0564838A

PATIENT
  Age: 29 Year
  Sex: Male

DRUGS (3)
  1. LAMICTAL [Suspect]
     Dosage: 125MG PER DAY
     Route: 048
     Dates: start: 20050101
  2. AMBIEN [Concomitant]
  3. PAXIL [Concomitant]

REACTIONS (6)
  - AFFECTIVE DISORDER [None]
  - ANGER [None]
  - DRUG INEFFECTIVE [None]
  - INSOMNIA [None]
  - RASH MACULAR [None]
  - SMOKER [None]
